FAERS Safety Report 16736699 (Version 1)
Quarter: 2019Q3

REPORT INFORMATION
  Report Type: Report from Study
  Country: US (occurrence: US)
  Receive Date: 20190823
  Receipt Date: 20190823
  Transmission Date: 20191005
  Serious: Yes (Hospitalization, Other)
  Sender: FDA-Public Use
  Company Number: PHEH2019US034858

PATIENT
  Age: 17 Year
  Sex: Male

DRUGS (1)
  1. AFINITOR [Suspect]
     Active Substance: EVEROLIMUS
     Indication: ASTROCYTOMA, LOW GRADE
     Dosage: 10 MG, QD
     Route: 048
     Dates: start: 20100714

REACTIONS (10)
  - Fall [Unknown]
  - Concussion [Unknown]
  - Atonic seizures [Unknown]
  - Cough [Unknown]
  - Pyrexia [Unknown]
  - Skull fracture [Unknown]
  - Seizure cluster [Unknown]
  - Head injury [Unknown]
  - Cerebral haemorrhage [Unknown]
  - Vomiting [Unknown]

NARRATIVE: CASE EVENT DATE: 20190816
